FAERS Safety Report 20606102 (Version 1)
Quarter: 2022Q1

REPORT INFORMATION
  Report Type: Spontaneous
  Country: DE (occurrence: None)
  Receive Date: 20220317
  Receipt Date: 20220317
  Transmission Date: 20220423
  Serious: No
  Sender: FDA-Public Use
  Company Number: DE-Spark Therapeutics, Inc.-DE-SPK-20-00064

PATIENT
  Age: 36 Year
  Sex: Female

DRUGS (2)
  1. LUXTURNA [Suspect]
     Active Substance: VORETIGENE NEPARVOVEC-RZYL
     Indication: Retinal dystrophy
     Route: 031
     Dates: start: 201907, end: 201907
  2. LUXTURNA [Suspect]
     Active Substance: VORETIGENE NEPARVOVEC-RZYL
     Indication: Retinal dystrophy
     Dates: start: 201907, end: 201907

REACTIONS (1)
  - Retinal degeneration [Not Recovered/Not Resolved]
